FAERS Safety Report 21840768 (Version 14)
Quarter: 2024Q1

REPORT INFORMATION
  Report Type: Other
  Country: IN (occurrence: None)
  Receive Date: 20230110
  Receipt Date: 20240318
  Transmission Date: 20240410
  Serious: Yes (Hospitalization)
  Sender: FDA-Public Use
  Company Number: IN-ROCHE-3203977

PATIENT
  Age: 63 Year
  Sex: Female

DRUGS (4)
  1. PERJETA [Suspect]
     Active Substance: PERTUZUMAB
     Indication: Breast cancer metastatic
     Route: 042
     Dates: start: 20160506
  2. PERJETA [Suspect]
     Active Substance: PERTUZUMAB
     Route: 042
  3. PERJETA [Suspect]
     Active Substance: PERTUZUMAB
     Dosage: HELD ON 11/MAR/2023.
     Route: 042
  4. PERJETA [Suspect]
     Active Substance: PERTUZUMAB
     Dosage: LIFETIME FREE
     Route: 042

REACTIONS (7)
  - Peripheral swelling [Unknown]
  - Pain in extremity [Unknown]
  - Hand fracture [Unknown]
  - Pyrexia [Unknown]
  - Cough [Unknown]
  - Nasopharyngitis [Unknown]
  - Off label use [Unknown]
